FAERS Safety Report 9800297 (Version 1)
Quarter: 2014Q1

REPORT INFORMATION
  Report Type: Spontaneous
  Country: US (occurrence: US)
  Receive Date: 20140106
  Receipt Date: 20140106
  Transmission Date: 20141002
  Serious: Yes (Other)
  Sender: FDA-Public Use
  Company Number: CHPA2013US019009

PATIENT
  Age: 37 Year
  Sex: Female

DRUGS (1)
  1. CVS [Suspect]
     Indication: SMOKING CESSATION THERAPY
     Dosage: 21 MG, QD
     Route: 062
     Dates: start: 20131229, end: 20131230

REACTIONS (4)
  - Malaise [Recovering/Resolving]
  - Dyspnoea [Recovering/Resolving]
  - Incorrect dose administered [Unknown]
  - Overdose [Unknown]
